FAERS Safety Report 24436958 (Version 1)
Quarter: 2024Q4

REPORT INFORMATION
  Report Type: Spontaneous
  Country: US (occurrence: None)
  Receive Date: 20241011
  Receipt Date: 20241011
  Transmission Date: 20250114
  Serious: No
  Sender: Public
  Company Number: None

PATIENT

DRUGS (1)
  1. INTERFERON [Suspect]
     Active Substance: INTERFERON

REACTIONS (2)
  - Spinal disorder [None]
  - Nonspecific reaction [None]
